FAERS Safety Report 7796089-2 (Version None)
Quarter: 2011Q4

REPORT INFORMATION
  Report Type: 
  Country: None (occurrence: None)
  Receive Date: 20111004
  Receipt Date: 20110919
  Transmission Date: 20120403
  Serious: Yes (Hospitalization)
  Sender: FDA-Public Use
  Company Number: US-WATSON-2011-15639

PATIENT
  Age: 47 Year
  Sex: Female

DRUGS (1)
  1. VERAPAMIL HCL [Suspect]
     Indication: PRODUCT USED FOR UNKNOWN INDICATION
     Dosage: 180 MG, DAILY

REACTIONS (3)
  - MYOCARDIAL INFARCTION [None]
  - ARTERIOSPASM CORONARY [None]
  - DRUG WITHDRAWAL SYNDROME [None]
